FAERS Safety Report 6380072-8 (Version None)
Quarter: 2009Q3

REPORT INFORMATION
  Report Type: 
  Country: None (occurrence: None)
  Receive Date: 20090929
  Receipt Date: 20090908
  Transmission Date: 20100115
  Serious: Yes (Death, Hospitalization, Other)
  Sender: FDA-Public Use
  Company Number: AU-RANBAXY-2009US-27221

PATIENT

DRUGS (2)
  1. TEMPRA SYRUP [Suspect]
     Indication: DRUG USE FOR UNKNOWN INDICATION
     Dosage: UNK, UNK
     Route: 048
  2. NEOMYCIN [Suspect]
     Indication: DRUG USE FOR UNKNOWN INDICATION
     Route: 065

REACTIONS (23)
  - BLOOD GLUCOSE DECREASED [None]
  - COMA [None]
  - DEATH [None]
  - DEHYDRATION [None]
  - DISORIENTATION [None]
  - DRUG TOXICITY [None]
  - GASTROINTESTINAL HAEMORRHAGE [None]
  - HAEMATEMESIS [None]
  - HAEMORRHAGE [None]
  - HEPATIC FAILURE [None]
  - HEPATOMEGALY [None]
  - HYPERAMMONAEMIA [None]
  - HYPERVENTILATION [None]
  - INTRACRANIAL PRESSURE INCREASED [None]
  - JAUNDICE [None]
  - LETHARGY [None]
  - MELAENA [None]
  - OLIGURIA [None]
  - PYREXIA [None]
  - RENAL FAILURE [None]
  - UNRESPONSIVE TO STIMULI [None]
  - UPPER RESPIRATORY TRACT INFECTION [None]
  - VOMITING [None]
